FAERS Safety Report 16187460 (Version 1)
Quarter: 2019Q2

REPORT INFORMATION
  Report Type: Spontaneous
  Country: DE (occurrence: DE)
  Receive Date: 20190412
  Receipt Date: 20190412
  Transmission Date: 20190711
  Serious: Yes (Other)
  Sender: FDA-Public Use
  Company Number: DE-ALKEM LABORATORIES LIMITED-DE-ALKEM-2018-08255

PATIENT
  Age: 80 Year
  Sex: Female

DRUGS (25)
  1. HALOPERIDOL. [Suspect]
     Active Substance: HALOPERIDOL
     Dosage: 0.5 MG, QD
     Route: 048
     Dates: start: 20110906, end: 20110912
  2. LITHIUM. [Suspect]
     Active Substance: LITHIUM
     Indication: PRODUCT USED FOR UNKNOWN INDICATION
     Dosage: 450 MG, QD
     Route: 048
     Dates: start: 20110725, end: 20110725
  3. LITHIUM. [Suspect]
     Active Substance: LITHIUM
     Dosage: 225 MG, QD
     Route: 048
     Dates: start: 20110726, end: 20110811
  4. AGOMELATINE [Suspect]
     Active Substance: AGOMELATINE
     Dosage: 50 MG, QD
     Route: 048
     Dates: start: 20110818, end: 20110914
  5. SERTRALINE [Suspect]
     Active Substance: SERTRALINE HYDROCHLORIDE
     Indication: PRODUCT USED FOR UNKNOWN INDICATION
     Dosage: 50 MG, QD
     Route: 048
     Dates: start: 20110915, end: 20110919
  6. LISINOPRIL. [Concomitant]
     Active Substance: LISINOPRIL
     Indication: PRODUCT USED FOR UNKNOWN INDICATION
     Dosage: 20 MG, QD
     Route: 048
     Dates: start: 20110722, end: 20110810
  7. AGOMELATINE [Suspect]
     Active Substance: AGOMELATINE
     Indication: PRODUCT USED FOR UNKNOWN INDICATION
     Dosage: 25 MG, QD
     Route: 048
     Dates: start: 20110811, end: 20110817
  8. DOMINAL (ASPIRIN) [Suspect]
     Active Substance: ASPIRIN
     Dosage: 80 MG, UNK
     Route: 048
     Dates: start: 20110826, end: 20110904
  9. PHENPRO [Concomitant]
     Active Substance: PHENPROCOUMON
     Indication: PRODUCT USED FOR UNKNOWN INDICATION
     Dosage: 1.5 MG, QD
     Route: 048
     Dates: start: 20110722, end: 20111012
  10. QUETIAPINE FUMARATE. [Suspect]
     Active Substance: QUETIAPINE FUMARATE
     Dosage: 175 MG, QD
     Route: 048
     Dates: start: 20110902, end: 20110905
  11. SERTRALINE [Suspect]
     Active Substance: SERTRALINE HYDROCHLORIDE
     Dosage: 100 MG, QD
     Route: 048
     Dates: start: 20110920, end: 20120101
  12. LISINOPRIL. [Concomitant]
     Active Substance: LISINOPRIL
     Dosage: 10 MG, QD
     Route: 048
     Dates: start: 20110811, end: 20110826
  13. MACROGOL [Concomitant]
     Active Substance: POLYETHYLENE GLYCOLS
     Indication: PRODUCT USED FOR UNKNOWN INDICATION
     Dosage: SCHON LANGER 1 BTL.
     Route: 065
  14. QUETIAPINE FUMARATE. [Suspect]
     Active Substance: QUETIAPINE FUMARATE
     Indication: PRODUCT USED FOR UNKNOWN INDICATION
     Dosage: 25 MG, QD
     Route: 048
     Dates: start: 20110822, end: 20110825
  15. QUETIAPINE FUMARATE. [Suspect]
     Active Substance: QUETIAPINE FUMARATE
     Dosage: 125 MG, QD
     Route: 048
     Dates: start: 20110830, end: 20110901
  16. QUETIAPINE FUMARATE. [Suspect]
     Active Substance: QUETIAPINE FUMARATE
     Dosage: 250 MG, QD
     Route: 048
     Dates: start: 20110912
  17. LITHIUM. [Suspect]
     Active Substance: LITHIUM
     Dosage: 450 MG, QD
     Route: 048
     Dates: start: 20110914, end: 20110921
  18. LISINOPRIL. [Concomitant]
     Active Substance: LISINOPRIL
     Dosage: 5 MG, QD
     Route: 048
     Dates: start: 20110827, end: 20111012
  19. QUETIAPINE FUMARATE. [Suspect]
     Active Substance: QUETIAPINE FUMARATE
     Dosage: 225 MG, QD
     Route: 048
     Dates: start: 20110906, end: 20110911
  20. HALOPERIDOL. [Suspect]
     Active Substance: HALOPERIDOL
     Indication: PRODUCT USED FOR UNKNOWN INDICATION
     Dosage: 1 MG, QD
     Route: 048
     Dates: start: 20110913, end: 20110914
  21. ALENDRONAT [Concomitant]
     Active Substance: ALENDRONATE SODIUM
     Indication: PRODUCT USED FOR UNKNOWN INDICATION
     Dosage: 70 MG, UNK SCHON LANGER
     Route: 048
  22. QUETIAPINE FUMARATE. [Suspect]
     Active Substance: QUETIAPINE FUMARATE
     Dosage: 50 MG, QD
     Route: 048
     Dates: start: 20110826, end: 20110829
  23. LITHIUM. [Suspect]
     Active Substance: LITHIUM
     Dosage: 675 MG, QD
     Route: 048
     Dates: start: 20110922
  24. DOMINAL (ASPIRIN) [Suspect]
     Active Substance: ASPIRIN
     Indication: PRODUCT USED FOR UNKNOWN INDICATION
     Dosage: 120 MG, QD
     Route: 048
     Dates: start: 20110722, end: 20110825
  25. DOMINAL (ASPIRIN) [Suspect]
     Active Substance: ASPIRIN
     Dosage: 120 MG, UNK
     Route: 048
     Dates: start: 20110905, end: 20110914

REACTIONS (3)
  - Gait inability [Recovered/Resolved]
  - Dysphagia [Recovered/Resolved]
  - Salivary hypersecretion [Recovered/Resolved]

NARRATIVE: CASE EVENT DATE: 20110914
